FAERS Safety Report 8117353-3 (Version None)
Quarter: 2012Q1

REPORT INFORMATION
  Report Type: 
  Country: None (occurrence: None)
  Receive Date: 20120206
  Receipt Date: 20120126
  Transmission Date: 20120608
  Serious: Yes (Hospitalization, Other)
  Sender: FDA-Public Use
  Company Number: CA-ASTRAZENECA-2012SE05482

PATIENT
  Age: 71 Year
  Sex: Female

DRUGS (2)
  1. CRESTOR [Suspect]
     Indication: BLOOD CHOLESTEROL INCREASED
     Route: 048
  2. COVERSYL PLUS [Suspect]
     Route: 065

REACTIONS (5)
  - TRANSIENT ISCHAEMIC ATTACK [None]
  - FATIGUE [None]
  - RASH PRURITIC [None]
  - BLINDNESS [None]
  - WEIGHT DECREASED [None]
